FAERS Safety Report 5004392-4 (Version None)
Quarter: 2006Q2

REPORT INFORMATION
  Report Type: 
  Country: None (occurrence: None)
  Receive Date: 20060517
  Receipt Date: 20051202
  Transmission Date: 20061013
  Serious: Yes (Hospitalization)
  Sender: FDA-Public Use
  Company Number: FRWYE200702DEC05

PATIENT
  Sex: Female

DRUGS (11)
  1. ENBREL [Suspect]
     Indication: ANKYLOSING SPONDYLITIS
     Dosage: UNKNOWN
     Route: 058
     Dates: start: 20050201, end: 20050801
  2. NOVATREX [Suspect]
     Indication: ANKYLOSING SPONDYLITIS
     Dosage: UNKNOWN
     Route: 048
     Dates: start: 20041001
  3. DEXTROPROPOXYPHENE HYDROCHLORIDE/PARACETAMOL [Suspect]
     Indication: PAIN
     Route: 048
     Dates: start: 20041201, end: 20051201
  4. NAPROXEN [Concomitant]
     Dates: start: 20041201, end: 20051201
  5. NAPROXEN [Concomitant]
     Dates: start: 20051201
  6. SULFASALAZINE [Concomitant]
     Dates: end: 20050101
  7. CORTICOSTEROIDS [Concomitant]
     Dates: start: 20050901
  8. PARACETAMOL/TRAMADOL HYDROCHLORIDE [Concomitant]
  9. PARACETAMOL [Concomitant]
  10. TRAMADOL HCL [Concomitant]
  11. LAROXYL [Concomitant]

REACTIONS (8)
  - CROHN'S DISEASE [None]
  - DEMYELINATION [None]
  - DRUG EFFECT DECREASED [None]
  - FOLATE DEFICIENCY [None]
  - HEADACHE [None]
  - MULTIPLE SCLEROSIS [None]
  - SAPHO SYNDROME [None]
  - SOMNOLENCE [None]
